FAERS Safety Report 5759009-8 (Version None)
Quarter: 2008Q2

REPORT INFORMATION
  Report Type: 
  Country: None (occurrence: None)
  Receive Date: 20080604
  Receipt Date: 20080528
  Transmission Date: 20081010
  Serious: Yes (Hospitalization)
  Sender: FDA-Public Use
  Company Number: JP-PFIZER INC-2008016335

PATIENT
  Sex: Male
  Weight: 45 kg

DRUGS (8)
  1. AZULFIDINE EN-TABS [Suspect]
     Indication: RHEUMATOID ARTHRITIS
     Dosage: TEXT:2 TABLETS-FREQ:DAILY
     Route: 048
     Dates: start: 20060601, end: 20080205
  2. PREDNISOLONE [Concomitant]
     Route: 048
     Dates: start: 20060601, end: 20080220
  3. SOLETON [Concomitant]
     Route: 048
  4. MUCOSTA [Concomitant]
     Indication: GASTRIC ULCER
     Route: 048
  5. AMARYL [Concomitant]
     Indication: DIABETES MELLITUS
     Route: 048
  6. LANSOPRAZOLE [Concomitant]
     Indication: GASTRIC ULCER
     Route: 048
  7. BASEN [Concomitant]
     Indication: DIABETES MELLITUS
     Route: 048
  8. ALENDRONATE SODIUM [Concomitant]
     Indication: OSTEOPOROSIS
     Route: 048

REACTIONS (1)
  - GLOMERULONEPHRITIS MEMBRANOUS [None]
